FAERS Safety Report 4884067-2 (Version None)
Quarter: 2006Q1

REPORT INFORMATION
  Report Type: 
  Country: None (occurrence: None)
  Receive Date: 20060118
  Receipt Date: 20060111
  Transmission Date: 20060701
  Serious: Yes (Other)
  Sender: FDA-Public Use
  Company Number: US-MERCK-0601USA01330

PATIENT
  Sex: Male

DRUGS (1)
  1. VIOXX [Suspect]
     Route: 065
     Dates: start: 20000501, end: 20040601

REACTIONS (2)
  - INJURY [None]
  - MYOCARDIAL INFARCTION [None]
